FAERS Safety Report 23073848 (Version 1)
Quarter: 2023Q4

REPORT INFORMATION
  Report Type: Spontaneous
  Country: US (occurrence: US)
  Receive Date: 20231017
  Receipt Date: 20231017
  Transmission Date: 20240109
  Serious: No
  Sender: FDA-Public Use
  Company Number: US-GLAXOSMITHKLINE-USCH2023048930

PATIENT

DRUGS (1)
  1. EQUATE NICOTINE [Suspect]
     Active Substance: NICOTINE
     Indication: Skin irritation
     Dosage: UNK
     Dates: start: 20231004

REACTIONS (1)
  - Rash [Unknown]

NARRATIVE: CASE EVENT DATE: 20231004
